FAERS Safety Report 18820683 (Version 1)
Quarter: 2021Q1

REPORT INFORMATION
  Report Type: Spontaneous
  Country: US (occurrence: US)
  Receive Date: 20210201
  Receipt Date: 20210201
  Transmission Date: 20210419
  Serious: Yes (Disabling)
  Sender: FDA-Public Use
  Company Number: None

PATIENT
  Age: 36 Year
  Sex: Male
  Weight: 72 kg

DRUGS (1)
  1. PROPECIA [Suspect]
     Active Substance: FINASTERIDE
     Indication: ANDROGENETIC ALOPECIA
     Dates: start: 20110101, end: 20130901

REACTIONS (13)
  - Feeling abnormal [None]
  - Dysphemia [None]
  - Urinary incontinence [None]
  - Fatigue [None]
  - Loss of personal independence in daily activities [None]
  - Immune system disorder [None]
  - Anxiety [None]
  - Insomnia [None]
  - Amnesia [None]
  - Erectile dysfunction [None]
  - Depression [None]
  - Hypoaesthesia [None]
  - Gastric disorder [None]

NARRATIVE: CASE EVENT DATE: 20130228
